FAERS Safety Report 4741394-7 (Version None)
Quarter: 2005Q3

REPORT INFORMATION
  Report Type: 
  Country: None (occurrence: None)
  Receive Date: 20050803
  Receipt Date: 20040824
  Transmission Date: 20060218
  Serious: Yes (Other)
  Sender: FDA-Public Use
  Company Number: 2004-08-1456

PATIENT
  Age: 69 Year
  Sex: Female
  Weight: 66 kg

DRUGS (16)
  1. INTRON A [Suspect]
     Indication: EOSINOPHILIA
     Dosage: SEE IMAGE
     Route: 058
     Dates: start: 20040501, end: 20040801
  2. INTRON A [Suspect]
     Indication: EOSINOPHILIA
     Dosage: SEE IMAGE
     Route: 058
     Dates: start: 20040501
  3. INTRON A [Suspect]
     Indication: EOSINOPHILIA
     Dosage: SEE IMAGE
     Route: 058
     Dates: start: 20040801
  4. PREMARIN [Concomitant]
  5. PAXIL [Concomitant]
  6. PREDNISONE [Concomitant]
  7. WARFARIN [Concomitant]
  8. LEVSIN [Concomitant]
  9. OXYCODONE HCL [Concomitant]
  10. CALCIUM GLUCONATE [Concomitant]
  11. VITAMIN D [Concomitant]
  12. BUMEX [Concomitant]
  13. NITROSTAT [Concomitant]
  14. TRAZODONE [Concomitant]
  15. PROTONIX [Concomitant]
  16. CELEBREX [Concomitant]

REACTIONS (2)
  - DEPRESSION [None]
  - SUICIDAL IDEATION [None]
